FAERS Safety Report 17538962 (Version 1)
Quarter: 2020Q1

REPORT INFORMATION
  Report Type: Spontaneous
  Country: DE (occurrence: DE)
  Receive Date: 20200313
  Receipt Date: 20200313
  Transmission Date: 20200409
  Serious: Yes (Other)
  Sender: FDA-Public Use
  Company Number: DE-RECORDATI RARE DISEASES-DKLU1060504

PATIENT
  Sex: Male
  Weight: 2.4 kg

DRUGS (2)
  1. VINCRISTINE [Suspect]
     Active Substance: VINCRISTINE
     Indication: NEPHROBLASTOMA
     Route: 064
  2. DACTINOMYCIN [Suspect]
     Active Substance: DACTINOMYCIN
     Indication: MATERNAL CONDITION AFFECTING FOETUS
     Route: 064

REACTIONS (3)
  - Premature baby [Unknown]
  - Exposure during pregnancy [Unknown]
  - Anaemia [Unknown]
